FAERS Safety Report 12376483 (Version 1)
Quarter: 2016Q2

REPORT INFORMATION
  Report Type: Spontaneous
  Country: None (occurrence: US)
  Receive Date: 20160517
  Receipt Date: 20160517
  Transmission Date: 20160815
  Serious: No
  Sender: FDA-Public Use
  Company Number: US-MERZ NORTH AMERICA, INC.-16MRZ-00296

PATIENT
  Sex: Female

DRUGS (1)
  1. ASCLERA [Suspect]
     Active Substance: POLIDOCANOL
     Indication: PRODUCT USED FOR UNKNOWN INDICATION

REACTIONS (3)
  - Palpitations [None]
  - Limb discomfort [None]
  - Swollen tongue [None]
